FAERS Safety Report 7594176-5 (Version None)
Quarter: 2011Q3

REPORT INFORMATION
  Report Type: 
  Country: None (occurrence: None)
  Receive Date: 20110706
  Receipt Date: 20110627
  Transmission Date: 20111222
  Serious: Yes (Hospitalization)
  Sender: FDA-Public Use
  Company Number: PHHO2011DE11584

PATIENT
  Sex: Male
  Weight: 76 kg

DRUGS (2)
  1. MYCOPHENOLIC ACID [Suspect]
     Indication: INTERMEDIATE UVEITIS
     Dosage: 1440 MG, DAILY
     Route: 048
  2. PREDNISOLONE [Concomitant]
     Dosage: 2.5 MG, DAILY
     Route: 048

REACTIONS (1)
  - GASTROINTESTINAL INFLAMMATION [None]
